FAERS Safety Report 9199339 (Version 2)
Quarter: 2013Q2

REPORT INFORMATION
  Report Type: Spontaneous
  Country: US (occurrence: US)
  Receive Date: 20130329
  Receipt Date: 20130417
  Transmission Date: 20140414
  Serious: Yes (Hospitalization)
  Sender: FDA-Public Use
  Company Number: US-009507513-1303USA008754

PATIENT
  Sex: Male

DRUGS (3)
  1. VICTRELIS [Suspect]
     Indication: HEPATITIS C
     Dosage: 800 MG, TID
     Route: 048
     Dates: start: 20130128
  2. PEGINTRON [Suspect]
     Indication: HEPATITIS C
     Dosage: 96 MICROGRAM, QW
     Route: 058
     Dates: start: 20130115
  3. RIBASPHERE [Suspect]
     Indication: HEPATITIS C
     Dosage: UNK
     Dates: start: 20130115

REACTIONS (14)
  - Full blood count decreased [Unknown]
  - Anaemia [Unknown]
  - Vomiting [Unknown]
  - Alopecia [Unknown]
  - Libido decreased [Unknown]
  - Migraine [Unknown]
  - Headache [Unknown]
  - Blood product transfusion [Unknown]
  - Platelet transfusion [Unknown]
  - Anxiety [Unknown]
  - Fatigue [Unknown]
  - Dry skin [Unknown]
  - Irritability [Unknown]
  - Nausea [Unknown]
